FAERS Safety Report 10143461 (Version 1)
Quarter: 2014Q2

REPORT INFORMATION
  Report Type: Spontaneous
  Country: US (occurrence: None)
  Receive Date: 20140429
  Receipt Date: 20140429
  Transmission Date: 20141212
  Serious: Yes (Hospitalization)
  Sender: FDA-Public Use
  Company Number: None

PATIENT
  Age: 81 Year
  Sex: Female
  Weight: 60 kg

DRUGS (2)
  1. MELOXICAM [Suspect]
     Indication: ARTHRITIS
     Route: 048
     Dates: start: 20131104, end: 20140421
  2. IBUPROFEN [Suspect]
     Indication: ARTHRITIS
     Route: 048
     Dates: start: 20131015, end: 20140421

REACTIONS (3)
  - Haemorrhage [None]
  - Epistaxis [None]
  - Melaena [None]
